FAERS Safety Report 18895727 (Version 1)
Quarter: 2021Q1

REPORT INFORMATION
  Report Type: Spontaneous
  Country: US (occurrence: US)
  Receive Date: 20210215
  Receipt Date: 20210215
  Transmission Date: 20210420
  Serious: Yes (Other)
  Sender: FDA-Public Use
  Company Number: US-SUNOVION-2021SUN000368

PATIENT
  Sex: Male

DRUGS (2)
  1. CYMBALTA [Concomitant]
     Active Substance: DULOXETINE HYDROCHLORIDE
  2. LATUDA [Suspect]
     Active Substance: LURASIDONE HYDROCHLORIDE
     Dosage: UNK
     Route: 048

REACTIONS (20)
  - Suicidal ideation [Unknown]
  - Feeling abnormal [Unknown]
  - Disturbance in attention [Unknown]
  - Hyperphagia [Unknown]
  - Anger [Unknown]
  - Asthenia [Unknown]
  - Major depression [Unknown]
  - Apathy [Unknown]
  - Anxiety [Unknown]
  - Sleep disorder [Unknown]
  - Bipolar II disorder [Unknown]
  - Suicide attempt [Unknown]
  - Homicidal ideation [Unknown]
  - Depressed mood [Unknown]
  - Insomnia [Unknown]
  - Decreased appetite [Unknown]
  - Substance use disorder [Unknown]
  - Anhedonia [Unknown]
  - Depression [Unknown]
  - Fatigue [Unknown]
